FAERS Safety Report 7993682-9 (Version None)
Quarter: 2011Q4

REPORT INFORMATION
  Report Type: 
  Country: None (occurrence: None)
  Receive Date: 20111219
  Receipt Date: 20111202
  Transmission Date: 20120403
  Serious: Yes (Other)
  Sender: FDA-Public Use
  Company Number: PHHY2011IT109476

PATIENT
  Sex: Male

DRUGS (2)
  1. CARDURA [Suspect]
     Dosage: 2 MG, QD
     Route: 048
     Dates: start: 20110905, end: 20110915
  2. BENAZEPRIL HYDROCHLORIDE [Suspect]
     Dosage: 5 MG, QD
     Route: 048
     Dates: start: 20100916, end: 20110915

REACTIONS (2)
  - SYNCOPE [None]
  - BLOOD POTASSIUM DECREASED [None]
